FAERS Safety Report 7281079-9 (Version None)
Quarter: 2011Q1

REPORT INFORMATION
  Report Type: 
  Country: None (occurrence: None)
  Receive Date: 20110208
  Receipt Date: 20110128
  Transmission Date: 20110831
  Serious: Yes (Hospitalization)
  Sender: FDA-Public Use
  Company Number: FR-MERCK-1101FRA00148

PATIENT
  Age: 85 Year
  Sex: Female

DRUGS (6)
  1. ZOLPIDEM TARTRATE [Concomitant]
     Route: 048
  2. RAMIPRIL [Concomitant]
     Route: 048
  3. FLUINDIONE [Suspect]
     Indication: PROPHYLAXIS
     Route: 048
     Dates: end: 20100710
  4. ZETIA [Suspect]
     Indication: HYPERCHOLESTEROLAEMIA
     Route: 048
  5. BISOPROLOL FUMARATE [Concomitant]
     Route: 048
  6. ATORVASTATIN CALCIUM [Suspect]
     Indication: HYPERCHOLESTEROLAEMIA
     Route: 048

REACTIONS (2)
  - INTRA-ABDOMINAL HAEMATOMA [None]
  - PAIN [None]
